FAERS Safety Report 10171407 (Version 1)
Quarter: 2014Q2

REPORT INFORMATION
  Report Type: Spontaneous
  Country: IT (occurrence: IT)
  Receive Date: 20140514
  Receipt Date: 20140514
  Transmission Date: 20141212
  Serious: Yes (Other)
  Sender: FDA-Public Use
  Company Number: IT-ABBVIE-14P-083-1237001-00

PATIENT
  Age: 8 Year
  Sex: Female

DRUGS (2)
  1. ENANTONE [Suspect]
     Indication: PRECOCIOUS PUBERTY
     Dates: start: 20140421
  2. ENANTONE [Suspect]
     Dates: start: 20140505

REACTIONS (1)
  - Hypersensitivity [Recovered/Resolved]
